FAERS Safety Report 8596017-6 (Version None)
Quarter: 2012Q3

REPORT INFORMATION
  Report Type: 
  Country: None (occurrence: None)
  Receive Date: 20120815
  Receipt Date: 20120727
  Transmission Date: 20120928
  Serious: Yes (Hospitalization)
  Sender: FDA-Public Use
  Company Number: IN-ROCHE-1101196

PATIENT
  Sex: Female

DRUGS (6)
  1. PREDNISOLONE [Suspect]
     Indication: RENAL TRANSPLANT
  2. CYCLOSPORINE [Suspect]
     Indication: RENAL TRANSPLANT
     Route: 048
     Dates: start: 20070526
  3. CELLCEPT [Suspect]
     Indication: RENAL TRANSPLANT
     Dosage: RESTARTED
     Dates: start: 20120731
  4. PANTOPRAZOLE SODIUM [Concomitant]
  5. ULORIC [Suspect]
     Indication: PRODUCT USED FOR UNKNOWN INDICATION
  6. FOLVITE [Concomitant]

REACTIONS (2)
  - PANCYTOPENIA [None]
  - FEBRILE NEUTROPENIA [None]
